FAERS Safety Report 16070797 (Version 1)
Quarter: 2019Q1

REPORT INFORMATION
  Report Type: Spontaneous
  Country: GB (occurrence: GB)
  Receive Date: 20190314
  Receipt Date: 20190314
  Transmission Date: 20190418
  Serious: Yes (Other)
  Sender: FDA-Public Use
  Company Number: GB-ACCORD-112532

PATIENT
  Age: 23 Year
  Sex: Female
  Weight: 110 kg

DRUGS (3)
  1. MONTELUKAST [Suspect]
     Active Substance: MONTELUKAST SODIUM
     Indication: PRODUCT USED FOR UNKNOWN INDICATION
     Dosage: AT NIGHT.
     Dates: start: 20180903, end: 20181001
  2. FOSTAIR [Concomitant]
     Active Substance: BECLOMETHASONE\FORMOTEROL
     Dosage: PUFFS.
     Dates: start: 20180130
  3. SALBUTAMOL [Concomitant]
     Active Substance: ALBUTEROL
     Route: 055
     Dates: start: 20180930, end: 20181003

REACTIONS (2)
  - Pruritus [Recovered/Resolved]
  - Joint swelling [Recovered/Resolved]
